FAERS Safety Report 25263827 (Version 1)
Quarter: 2025Q2

REPORT INFORMATION
  Report Type: Spontaneous
  Country: GB (occurrence: GB)
  Receive Date: 20250502
  Receipt Date: 20250502
  Transmission Date: 20250717
  Serious: Yes (Death)
  Sender: BEIGENE
  Company Number: GB-BEIGENE-BGN-2025-006982

PATIENT
  Age: 88 Year

DRUGS (1)
  1. BRUKINSA [Suspect]
     Active Substance: ZANUBRUTINIB
     Indication: Marginal zone lymphoma refractory

REACTIONS (1)
  - Death [Fatal]
